FAERS Safety Report 8187134-3 (Version None)
Quarter: 2012Q1

REPORT INFORMATION
  Report Type: 
  Country: None (occurrence: None)
  Receive Date: 20120306
  Receipt Date: 20120228
  Transmission Date: 20120608
  Serious: Yes (Life-Threatening, Hospitalization, Other)
  Sender: FDA-Public Use
  Company Number: US-ACTELION-A-NJ2010-34536

PATIENT

DRUGS (3)
  1. TRACLEER [Suspect]
     Indication: PULMONARY ARTERIAL HYPERTENSION
     Dosage: UNK
     Route: 048
     Dates: start: 20030116
  2. CALCIUM CHANNEL BLOCKERS [Concomitant]
  3. COUMADIN [Concomitant]

REACTIONS (2)
  - ATRIAL FIBRILLATION [None]
  - CARDIAC PACEMAKER INSERTION [None]
